FAERS Safety Report 23904330 (Version 1)
Quarter: 2024Q2

REPORT INFORMATION
  Report Type: Other
  Country: AU (occurrence: AU)
  Receive Date: 20240527
  Receipt Date: 20240527
  Transmission Date: 20240716
  Serious: Yes (Other)
  Sender: FDA-Public Use
  Company Number: AU-LUPIN PHARMACEUTICALS INC.-2024-04195

PATIENT
  Sex: Male

DRUGS (1)
  1. LEVOTHYROXINE SODIUM [Suspect]
     Active Substance: LEVOTHYROXINE SODIUM
     Indication: Product used for unknown indication
     Dosage: UNK
     Route: 065

REACTIONS (17)
  - Arthralgia [Unknown]
  - Depressed mood [Unknown]
  - Diplopia [Unknown]
  - Dizziness [Unknown]
  - Dry eye [Unknown]
  - Eye pruritus [Unknown]
  - Headache [Unknown]
  - Hot flush [Unknown]
  - Hyperhidrosis [Unknown]
  - Insomnia [Unknown]
  - Malaise [Unknown]
  - Photophobia [Unknown]
  - Spinal pain [Unknown]
  - Tinnitus [Unknown]
  - Vertigo [Unknown]
  - Vision blurred [Unknown]
  - Vomiting [Unknown]
